FAERS Safety Report 7242544-3 (Version None)
Quarter: 2011Q1

REPORT INFORMATION
  Report Type: 
  Country: None (occurrence: None)
  Receive Date: 20110114
  Receipt Date: 20110105
  Transmission Date: 20110831
  Serious: Yes (Death)
  Sender: FDA-Public Use
  Company Number: GER/UKI/11/0017072

PATIENT
  Age: 25 Year
  Sex: Male

DRUGS (16)
  1. EFAVIRENZ [Concomitant]
  2. DARUNAVIR (DARUNAVIR) [Suspect]
     Indication: HIV INFECTION
  3. RITONAVIR [Suspect]
     Indication: HIV INFECTION
  4. ETHAMBUTOL (ETHAMBUTOL) [Concomitant]
  5. AMIKACIN [Concomitant]
  6. LINEZOLID [Concomitant]
  7. MOXIFLOXACIN [Suspect]
     Indication: TUBERCULOSIS
  8. PYRAZINAMIDE [Concomitant]
  9. TRUVADA [Concomitant]
  10. PROTHIONAMIDE (PROTIONAMIDE) [Concomitant]
  11. VALGANCICLOVIR HCL [Concomitant]
  12. ONDANSETRON [Suspect]
     Indication: PRODUCT USED FOR UNKNOWN INDICATION
  13. CLOFAZIMINE (CLOFAZIMINE) [Concomitant]
  14. CYCLOSERINE [Concomitant]
  15. HEPARIN LMW (DALTEPARIN SODIUM) [Concomitant]
  16. FLUCONAZOLE [Suspect]

REACTIONS (5)
  - NEUTROPHIL COUNT DECREASED [None]
  - MULTIPLE-DRUG RESISTANCE [None]
  - ARRHYTHMIA [None]
  - WHITE BLOOD CELL COUNT DECREASED [None]
  - BLOOD POTASSIUM DECREASED [None]
